FAERS Safety Report 14385622 (Version 2)
Quarter: 2019Q4

REPORT INFORMATION
  Report Type: Spontaneous
  Country: US (occurrence: US)
  Receive Date: 20180115
  Receipt Date: 20191018
  Transmission Date: 20200122
  Serious: Yes (Other)
  Sender: FDA-Public Use
  Company Number: US-SA-2017SA005654

PATIENT
  Age: 62 Year
  Sex: Female
  Weight: 65.77 kg

DRUGS (36)
  1. FLUCONAZOLE. [Concomitant]
     Active Substance: FLUCONAZOLE
     Dosage: UNK UNK,UNK
     Route: 065
     Dates: start: 2006, end: 2012
  2. AMOXICILLIN. [Concomitant]
     Active Substance: AMOXICILLIN
     Dosage: UNK UNK,UNK
     Route: 065
     Dates: start: 2006, end: 2012
  3. BENZONATATE. [Concomitant]
     Active Substance: BENZONATATE
     Dosage: UNK UNK,UNK
     Route: 065
     Dates: start: 2006, end: 2012
  4. LUNESTA [Concomitant]
     Active Substance: ESZOPICLONE
     Dosage: UNK UNK,UNK
     Route: 065
     Dates: start: 2006, end: 2012
  5. CEFDINIR. [Concomitant]
     Active Substance: CEFDINIR
     Dosage: UNK UNK,UNK
     Route: 065
     Dates: start: 2006, end: 2012
  6. BABY ASPIRIN [Concomitant]
     Active Substance: ASPIRIN
     Dosage: UNK UNK,UNK
     Route: 065
     Dates: start: 2006, end: 2012
  7. DEXAMETHASONE. [Concomitant]
     Active Substance: DEXAMETHASONE
     Dosage: UNK UNK,UNK
     Route: 065
     Dates: start: 2006, end: 2012
  8. ONDANSETRON [Concomitant]
     Active Substance: ONDANSETRON
     Dosage: UNK UNK,UNK
     Route: 065
     Dates: start: 2006, end: 2012
  9. PANTOPRAZOLE [Concomitant]
     Active Substance: PANTOPRAZOLE
     Dosage: UNK UNK,UNK
     Route: 065
     Dates: start: 2006, end: 2012
  10. CEFALEXIN [Concomitant]
     Active Substance: CEPHALEXIN
     Dosage: UNK UNK,UNK
     Route: 065
     Dates: start: 2006, end: 2012
  11. LEVOTHYROXINE. [Concomitant]
     Active Substance: LEVOTHYROXINE
     Indication: THYROID DISORDER
     Dosage: UNK UNK,UNK
     Route: 065
     Dates: start: 1972, end: 2017
  12. NEOSAR [Concomitant]
     Active Substance: CYCLOPHOSPHAMIDE
     Indication: BREAST CANCER FEMALE
     Dosage: UNK UNK,QCY
     Route: 042
  13. ESOMEPRAZOLE. [Concomitant]
     Active Substance: ESOMEPRAZOLE MAGNESIUM
     Dosage: UNK UNK,UNK
     Route: 065
     Dates: start: 2006, end: 2012
  14. LEVSIN [Concomitant]
     Active Substance: HYOSCYAMINE SULFATE
     Dosage: UNK UNK,UNK
     Route: 065
     Dates: start: 2006, end: 2012
  15. PLAVIX [Concomitant]
     Active Substance: CLOPIDOGREL BISULFATE
     Dosage: UNK UNK,UNK
     Route: 065
     Dates: start: 2006, end: 20170323
  16. CHLORDIAZEPOX [Concomitant]
     Dosage: UNK
     Dates: start: 2006, end: 2012
  17. HYOMAX [Concomitant]
     Active Substance: HYOSCYAMINE SULFATE
     Dosage: UNK
     Dates: start: 2006, end: 2012
  18. SALBUTAMOL SULFATE [Concomitant]
     Active Substance: ALBUTEROL SULFATE
     Dosage: UNK UNK,UNK
     Route: 065
     Dates: start: 2006, end: 2012
  19. AZITHROMYCIN ANHYDROUS. [Concomitant]
     Active Substance: AZITHROMYCIN ANHYDROUS
     Dosage: UNK UNK,UNK
     Route: 065
     Dates: start: 2006, end: 2012
  20. HYOSCYAMINE. [Concomitant]
     Active Substance: HYOSCYAMINE
     Dosage: UNK UNK,UNK
     Route: 065
     Dates: start: 2006, end: 2012
  21. PROCHLORPERAZINE. [Concomitant]
     Active Substance: PROCHLORPERAZINE
     Dosage: UNK UNK,UNK
     Route: 065
     Dates: start: 2006, end: 2012
  22. ALPRAZOLAM. [Concomitant]
     Active Substance: ALPRAZOLAM
     Dosage: UNK UNK,UNK
     Route: 065
     Dates: start: 2006, end: 2012
  23. CARAFATE [Concomitant]
     Active Substance: SUCRALFATE
     Dosage: UNK UNK,UNK
     Route: 065
     Dates: start: 2006, end: 2012
  24. HOMATROPINE [Concomitant]
     Active Substance: HOMATROPINE HYDROBROMIDE
  25. TUMS [CALCIUM CARBONATE;MAGNESIUM CARBONATE;MAGNESIUM TRISILICATE] [Concomitant]
     Active Substance: CALCIUM CARBONATE\MAGNESIUM CARBONATE\MAGNESIUM TRISILICATE
  26. METHYLPREDNISOLONE. [Concomitant]
     Active Substance: METHYLPREDNISOLONE
     Dosage: UNK
     Dates: start: 2006, end: 2012
  27. METOPROLOL. [Concomitant]
     Active Substance: METOPROLOL
  28. ZEMPLAR [Concomitant]
     Active Substance: PARICALCITOL
     Dosage: UNK UNK,UNK
     Route: 065
     Dates: start: 2006, end: 2012
  29. METHYLPREDNISOLONE. [Concomitant]
     Active Substance: METHYLPREDNISOLONE
     Dosage: UNK UNK,UNK
     Route: 065
     Dates: start: 2006, end: 2012
  30. TAXOTERE [Suspect]
     Active Substance: DOCETAXEL
     Indication: BREAST CANCER FEMALE
     Dosage: UNK UNK, Q3W
     Route: 042
     Dates: start: 20090616, end: 20090616
  31. TAXOTERE [Suspect]
     Active Substance: DOCETAXEL
     Dosage: UNK UNK, Q3W
     Route: 042
     Dates: start: 20090929, end: 20090929
  32. DOXYCYCLINE. [Concomitant]
     Active Substance: DOXYCYCLINE
     Dosage: UNK UNK,QCY
     Route: 042
     Dates: start: 2006, end: 2012
  33. PROAIR HFA [Concomitant]
     Active Substance: ALBUTEROL SULFATE
     Dosage: UNK
     Dates: start: 2006, end: 2012
  34. CHLORDIAZEPOXIDE. [Concomitant]
     Active Substance: CHLORDIAZEPOXIDE
     Dosage: UNK UNK,UNK
     Route: 065
     Dates: start: 2006, end: 2012
  35. PROPOXYPHENE. [Concomitant]
     Active Substance: PROPOXYPHENE
     Dosage: UNK UNK,UNK
     Route: 065
     Dates: start: 2006, end: 2012
  36. EFFEXOR [Concomitant]
     Active Substance: VENLAFAXINE HYDROCHLORIDE
     Dosage: UNK UNK,UNK
     Route: 065
     Dates: start: 2006, end: 2012

REACTIONS (6)
  - Psychological trauma [Unknown]
  - Anxiety [Unknown]
  - Emotional distress [Unknown]
  - Pain [Unknown]
  - Alopecia [Recovering/Resolving]
  - Impaired quality of life [Unknown]

NARRATIVE: CASE EVENT DATE: 200906
